FAERS Safety Report 18847076 (Version 1)
Quarter: 2021Q1

REPORT INFORMATION
  Report Type: Spontaneous
  Country: JP (occurrence: JP)
  Receive Date: 20210204
  Receipt Date: 20210204
  Transmission Date: 20210419
  Serious: Yes (Death, Life-Threatening, Hospitalization, Disabling)
  Sender: FDA-Public Use
  Company Number: JP-009507513-2102JPN001459

PATIENT
  Age: 86 Year
  Sex: Female
  Weight: 47 kg

DRUGS (16)
  1. JARDIANCE [Suspect]
     Active Substance: EMPAGLIFLOZIN
     Indication: TYPE 2 DIABETES MELLITUS
     Dosage: 10 MILLIGRAM, QD
     Route: 048
     Dates: start: 20180310, end: 20180327
  2. FUROSEMIDE. [Concomitant]
     Active Substance: FUROSEMIDE
     Indication: PRODUCT USED FOR UNKNOWN INDICATION
     Dosage: 20 MILLIGRAM, QD
     Route: 048
     Dates: start: 20180309, end: 20180328
  3. ENALART [Concomitant]
     Active Substance: ENALAPRIL MALEATE
     Indication: PRODUCT USED FOR UNKNOWN INDICATION
     Dosage: 1.25 MILLIGRAM, QD
     Route: 048
     Dates: start: 20180308
  4. VOGLIBOSE [Suspect]
     Active Substance: VOGLIBOSE
     Indication: PRODUCT USED FOR UNKNOWN INDICATION
     Dosage: 0.9 MILLIGRAM, QD
     Route: 048
     Dates: start: 20180310, end: 20180328
  5. METGLUCO [Suspect]
     Active Substance: METFORMIN HYDROCHLORIDE
     Route: 048
  6. BISOPROLOL FUMARATE. [Concomitant]
     Active Substance: BISOPROLOL FUMARATE
     Indication: PRODUCT USED FOR UNKNOWN INDICATION
     Dosage: 12.5 MILLIGRAM, QD
     Route: 048
     Dates: start: 20180312, end: 20180323
  7. JANUVIA [Suspect]
     Active Substance: SITAGLIPTIN PHOSPHATE
     Indication: PRODUCT USED FOR UNKNOWN INDICATION
     Dosage: 50 MILLIGRAM, QD
     Route: 048
     Dates: start: 20180310, end: 20180328
  8. JARDIANCE [Suspect]
     Active Substance: EMPAGLIFLOZIN
     Dosage: UNK
     Route: 048
  9. METGLUCO [Suspect]
     Active Substance: METFORMIN HYDROCHLORIDE
     Indication: DIABETES MELLITUS
     Dosage: 1500 MILLIGRAM, QD
     Route: 048
     Dates: start: 20180310, end: 20180328
  10. BISOPROLOL FUMARATE. [Concomitant]
     Active Substance: BISOPROLOL FUMARATE
     Dosage: 2.5 MILLIGRAM, QD
     Route: 048
     Dates: start: 20180324
  11. BAYASPIRIN [Concomitant]
     Active Substance: ASPIRIN
     Indication: PRODUCT USED FOR UNKNOWN INDICATION
     Dosage: 100 MILLIGRAM, QD
     Route: 048
     Dates: start: 20180308
  12. PITAVASTATIN CALCIUM [Concomitant]
     Active Substance: PITAVASTATIN CALCIUM
     Indication: DYSLIPIDAEMIA
     Dosage: 2 MILLIGRAM, QD
     Route: 048
     Dates: start: 20180308
  13. JANUVIA [Suspect]
     Active Substance: SITAGLIPTIN PHOSPHATE
     Dosage: UNK
  14. VOGLIBOSE [Suspect]
     Active Substance: VOGLIBOSE
     Route: 048
  15. SPIRONOLACTONE. [Concomitant]
     Active Substance: SPIRONOLACTONE
     Indication: PRODUCT USED FOR UNKNOWN INDICATION
     Dosage: 25 MILLIGRAM, QD
     Route: 048
     Dates: start: 20180308, end: 20180328
  16. PARIET [Concomitant]
     Active Substance: RABEPRAZOLE SODIUM
     Indication: PROPHYLAXIS AGAINST GASTROINTESTINAL ULCER
     Dosage: 5 MILLIGRAM, QD
     Route: 048
     Dates: start: 20180308

REACTIONS (3)
  - Cardiac failure acute [Fatal]
  - Ketoacidosis [Fatal]
  - Myocardial infarction [Fatal]

NARRATIVE: CASE EVENT DATE: 20180308
